FAERS Safety Report 23673571 (Version 1)
Quarter: 2024Q1

REPORT INFORMATION
  Report Type: Spontaneous
  Country: AE (occurrence: AE)
  Receive Date: 20240326
  Receipt Date: 20240326
  Transmission Date: 20240410
  Serious: Yes (Other)
  Sender: FDA-Public Use
  Company Number: AE-PFIZER INC-PV202400038539

PATIENT
  Age: 67 Year
  Sex: Male

DRUGS (4)
  1. LORBRENA [Suspect]
     Active Substance: LORLATINIB
     Indication: Anaplastic lymphoma kinase gene mutation
     Dosage: 100 MG, DAILY
     Dates: start: 20220410
  2. LORBRENA [Suspect]
     Active Substance: LORLATINIB
     Indication: Non-small cell lung cancer
     Dosage: 75 MG
     Dates: start: 20220903, end: 20221118
  3. LORBRENA [Suspect]
     Active Substance: LORLATINIB
     Dosage: 100 MG
     Dates: start: 20221205
  4. DENOSUMAB [Suspect]
     Active Substance: DENOSUMAB
     Dosage: 120 MG, EVERY 4 WEEKS
     Dates: start: 20220410

REACTIONS (17)
  - Amnesia [Recovering/Resolving]
  - Cerebral small vessel ischaemic disease [Unknown]
  - Lipids increased [Recovered/Resolved]
  - Fatigue [Unknown]
  - Confusional state [Recovering/Resolving]
  - Disturbance in attention [Recovering/Resolving]
  - Speech disorder [Recovering/Resolving]
  - Toothache [Unknown]
  - Abscess oral [Unknown]
  - Dental caries [Unknown]
  - Pain in extremity [Unknown]
  - Bone pain [Unknown]
  - Dry skin [Unknown]
  - Psoriasis [Unknown]
  - Neoplasm progression [Unknown]
  - Aspartate aminotransferase increased [Unknown]
  - Alanine aminotransferase increased [Unknown]

NARRATIVE: CASE EVENT DATE: 20220401
